FAERS Safety Report 11633266 (Version 4)
Quarter: 2015Q4

REPORT INFORMATION
  Report Type: Spontaneous
  Country: DE (occurrence: DE)
  Receive Date: 20151015
  Receipt Date: 20151027
  Transmission Date: 20160304
  Serious: Yes (Death, Other)
  Sender: FDA-Public Use
  Company Number: DE-BAXTER-2015BAX054966

PATIENT
  Age: 71 Year
  Sex: Male

DRUGS (19)
  1. CYCLOPHOSPHAMID TROCKENSUBSTANZ 2 G BAXTER ONCOLOGY [Suspect]
     Active Substance: CYCLOPHOSPHAMIDE
     Indication: GLOMERULONEPHRITIS MEMBRANOUS
     Dosage: 3 DOSES
     Route: 042
  2. DECORTIN [Suspect]
     Active Substance: PREDNISONE
     Indication: IMMUNOSUPPRESSION
     Route: 065
  3. IMIPENEM [Suspect]
     Active Substance: IMIPENEM
     Indication: THROMBOCYTOPENIA
     Route: 042
  4. SULFAMETHOXAZOLE AND TRIMETHOPRIM [Suspect]
     Active Substance: SULFAMETHOXAZOLE\TRIMETHOPRIM
     Indication: NOCARDIOSIS
     Route: 048
  5. FLUCONAZOL REDIBAG 2 MG/ML INFUSIONSL?SUNG [Suspect]
     Active Substance: FLUCONAZOLE
     Indication: ORGANISING PNEUMONIA
  6. MYCOPHENOLATE MOFETIL. [Suspect]
     Active Substance: MYCOPHENOLATE MOFETIL
     Route: 065
  7. LINEZOLID. [Suspect]
     Active Substance: LINEZOLID
     Route: 048
  8. FLUCONAZOL REDIBAG 2 MG/ML INFUSIONSL?SUNG [Suspect]
     Active Substance: FLUCONAZOLE
     Indication: ABSCESS
     Route: 065
  9. DECORTIN [Suspect]
     Active Substance: PREDNISONE
     Indication: GLOMERULONEPHRITIS MEMBRANOUS
     Route: 065
  10. DECORTIN [Suspect]
     Active Substance: PREDNISONE
     Route: 065
  11. CLARITHROMYCIN. [Suspect]
     Active Substance: CLARITHROMYCIN
     Indication: PNEUMONIA
     Route: 065
  12. IMIPENEM [Suspect]
     Active Substance: IMIPENEM
     Indication: ANAEMIA
     Route: 042
  13. METRONIDAZOL-INFUSIONSL?SUNG 0,5 % BAXTER [Suspect]
     Active Substance: METRONIDAZOLE
     Indication: ABSCESS BACTERIAL
     Route: 065
  14. MYCOPHENOLATE MOFETIL. [Suspect]
     Active Substance: MYCOPHENOLATE MOFETIL
     Indication: GLOMERULONEPHRITIS MEMBRANOUS
     Route: 065
  15. CEFTRIAXONE. [Suspect]
     Active Substance: CEFTRIAXONE
     Indication: PNEUMONIA
     Route: 065
  16. IMIPENEM [Suspect]
     Active Substance: IMIPENEM
     Indication: NOCARDIOSIS
     Route: 042
  17. FLUCONAZOL REDIBAG 2 MG/ML INFUSIONSL?SUNG [Suspect]
     Active Substance: FLUCONAZOLE
     Indication: PNEUMONIA NECROTISING
  18. LINEZOLID. [Suspect]
     Active Substance: LINEZOLID
     Indication: NOCARDIOSIS
     Route: 048
  19. METRONIDAZOL-INFUSIONSL?SUNG 0,5 % BAXTER [Suspect]
     Active Substance: METRONIDAZOLE
     Indication: LUNG ABSCESS

REACTIONS (4)
  - Chronic obstructive pulmonary disease [Recovered/Resolved]
  - Death [Fatal]
  - Nocardiosis [Recovered/Resolved]
  - Immunosuppression [Unknown]
